FAERS Safety Report 8697917 (Version 2)
Quarter: 2013Q4

REPORT INFORMATION
  Report Type: Spontaneous
  Country: US (occurrence: US)
  Receive Date: 20120801
  Receipt Date: 20131101
  Transmission Date: 20140711
  Serious: No
  Sender: FDA-Public Use
  Company Number: US-009507513-1207USA011146

PATIENT
  Sex: Female

DRUGS (6)
  1. ZOCOR [Suspect]
     Dosage: 20 MG, QD
     Route: 048
  2. ALDACTONE TABLETS [Suspect]
     Dosage: 25 MG, QD
     Route: 048
  3. BUSPAR [Suspect]
  4. NAPROSYN [Suspect]
     Dosage: 500 MG, BID
  5. BUSPAR [Suspect]
     Dosage: 15 MG, QD
  6. NEXIUM [Suspect]
     Dosage: 40 MG, QD

REACTIONS (8)
  - Musculoskeletal pain [Unknown]
  - Muscle spasms [Unknown]
  - Depression [Unknown]
  - Gastrooesophageal reflux disease [Unknown]
  - Abdominal pain [Unknown]
  - Drug hypersensitivity [Unknown]
  - Anxiety [Unknown]
  - Nausea [Unknown]
